FAERS Safety Report 7079881 (Version 3)
Quarter: 2018Q1

REPORT INFORMATION
  Report Type: Report from Study
  Country: US (occurrence: US)
  Receive Date: 20090812
  Receipt Date: 20180313
  Transmission Date: 20180509
  Serious: Yes (Hospitalization)
  Sender: FDA-Public Use
  Company Number: PHHO2009US04010

PATIENT
  Age: 36 Year
  Sex: Male
  Weight: 125.5 kg

DRUGS (1)
  1. ILARIS [Suspect]
     Active Substance: CANAKINUMAB
     Indication: GOUT
     Dosage: 25 MG, ONCE/SINGLE
     Route: 065
     Dates: start: 20090217

REACTIONS (2)
  - Appendicitis [Recovered/Resolved]
  - White blood cell count increased [Recovered/Resolved]

NARRATIVE: CASE EVENT DATE: 20090228
